FAERS Safety Report 10578433 (Version 1)
Quarter: 2014Q4

REPORT INFORMATION
  Report Type: Spontaneous
  Country: US (occurrence: None)
  Receive Date: 20141111
  Receipt Date: 20141111
  Transmission Date: 20150529
  Serious: Yes (Life-Threatening)
  Sender: FDA-Public Use
  Company Number: None

PATIENT
  Age: 69 Year
  Sex: Male

DRUGS (1)
  1. MITOMYCIN. [Suspect]
     Active Substance: MITOMYCIN
     Indication: BLADDER CANCER
     Dosage: 40 MG, ONE A WEEK, INTO BLADDER
     Dates: start: 20141002

REACTIONS (3)
  - Infection [None]
  - Blood disorder [None]
  - Infusion related reaction [None]

NARRATIVE: CASE EVENT DATE: 20141110
